FAERS Safety Report 5932865-6 (Version None)
Quarter: 2008Q4

REPORT INFORMATION
  Report Type: 
  Country: None (occurrence: None)
  Receive Date: 20081027
  Receipt Date: 20081027
  Transmission Date: 20090506
  Serious: Yes (Hospitalization)
  Sender: FDA-Public Use
  Company Number: None

PATIENT
  Age: 69 Year
  Sex: Male
  Weight: 59 kg

DRUGS (6)
  1. BEVACIZUMAB 7.5 [Suspect]
     Indication: GASTROOESOPHAGEAL CANCER
     Dosage: 7.5 EVERY 21 DAYS IV DRIP
     Route: 041
     Dates: start: 20080320, end: 20081002
  2. BEVACIZUMAB 7.5 [Suspect]
     Indication: METASTASES TO LIVER
     Dosage: 7.5 EVERY 21 DAYS IV DRIP
     Route: 041
     Dates: start: 20080320, end: 20081002
  3. DOCETAXEL [Suspect]
     Indication: GASTROOESOPHAGEAL CANCER
     Dosage: 70 EVERY 21 DAYS IV DRIP
     Route: 041
     Dates: start: 20080320, end: 20081002
  4. DOCETAXEL [Suspect]
     Indication: METASTASES TO LIVER
     Dosage: 70 EVERY 21 DAYS IV DRIP
     Route: 041
     Dates: start: 20080320, end: 20081002
  5. OXALIPLATIN [Suspect]
     Indication: GASTROOESOPHAGEAL CANCER
     Dosage: 75 EVERY 21 DAYS IV DRIP
     Route: 041
     Dates: start: 20080320, end: 20081002
  6. OXALIPLATIN [Suspect]
     Indication: METASTASES TO LIVER
     Dosage: 75 EVERY 21 DAYS IV DRIP
     Route: 041
     Dates: start: 20080320, end: 20081002

REACTIONS (3)
  - INTESTINAL PERFORATION [None]
  - OESOPHAGEAL FISTULA [None]
  - PNEUMONIA [None]
